FAERS Safety Report 18334317 (Version 1)
Quarter: 2020Q4

REPORT INFORMATION
  Report Type: Spontaneous
  Country: US (occurrence: US)
  Receive Date: 20201001
  Receipt Date: 20201001
  Transmission Date: 20210113
  Serious: Yes (Hospitalization, Other)
  Sender: FDA-Public Use
  Company Number: US-SA-2020SA269886

PATIENT

DRUGS (1)
  1. PRALUENT [Suspect]
     Active Substance: ALIROCUMAB
     Indication: HYPERCHOLESTEROLAEMIA
     Dosage: 75 MG, Q2W
     Route: 058
     Dates: start: 20200803

REACTIONS (4)
  - Thrombosis [Unknown]
  - Injection site bruising [Not Recovered/Not Resolved]
  - Cerebrovascular accident [Unknown]
  - Infection [Unknown]

NARRATIVE: CASE EVENT DATE: 20200912
